FAERS Safety Report 8325145-5 (Version None)
Quarter: 2012Q2

REPORT INFORMATION
  Report Type: 
  Country: None (occurrence: None)
  Receive Date: 20120501
  Receipt Date: 20120404
  Transmission Date: 20120825
  Serious: No
  Sender: FDA-Public Use
  Company Number: US-ABBOTT-12P-163-0922992-00

PATIENT
  Sex: Female

DRUGS (3)
  1. CREON [Suspect]
     Indication: ABDOMINAL DISTENSION
     Dates: start: 20120328, end: 20120330
  2. CREON [Suspect]
     Indication: FLATULENCE
  3. CREON [Suspect]
     Indication: DIARRHOEA

REACTIONS (9)
  - RASH PRURITIC [None]
  - RASH [None]
  - MOUTH ULCERATION [None]
  - RASH ERYTHEMATOUS [None]
  - SKIN ULCER [None]
  - SKIN BURNING SENSATION [None]
  - EXFOLIATIVE RASH [None]
  - OFF LABEL USE [None]
  - RECTAL ULCER [None]
